FAERS Safety Report 12325539 (Version 1)
Quarter: 2016Q2

REPORT INFORMATION
  Report Type: Spontaneous
  Country: CL (occurrence: CL)
  Receive Date: 20160503
  Receipt Date: 20160503
  Transmission Date: 20160815
  Serious: Yes (Other)
  Sender: FDA-Public Use
  Company Number: CL-ALLERGAN-1655555US

PATIENT
  Age: 11 Year
  Sex: Female

DRUGS (1)
  1. DECAPEPTYL LP 11.25MG [Suspect]
     Active Substance: TRIPTORELIN PAMOATE
     Indication: PRECOCIOUS PUBERTY
     Dosage: 11.25 MG, SINGLE
     Route: 030
     Dates: start: 20160329

REACTIONS (4)
  - Respiratory distress [Recovered/Resolved with Sequelae]
  - Off label use [Unknown]
  - Eyelid oedema [Recovered/Resolved]
  - Rash [Recovered/Resolved]

NARRATIVE: CASE EVENT DATE: 20160329
